FAERS Safety Report 8567386-8 (Version None)
Quarter: 2012Q3

REPORT INFORMATION
  Report Type: 
  Country: None (occurrence: None)
  Receive Date: 20120803
  Receipt Date: 20120801
  Transmission Date: 20120928
  Serious: Yes (Death, Hospitalization)
  Sender: FDA-Public Use
  Company Number: PHHO2012SE011018

PATIENT
  Sex: Male
  Weight: 102.7 kg

DRUGS (7)
  1. ILARIS [Suspect]
     Indication: CARDIOVASCULAR EVENT PROPHYLAXIS
     Dosage: 300 MG, UNK
     Route: 058
     Dates: start: 20120502, end: 20120502
  2. CARVEDILOL [Concomitant]
     Indication: CARDIAC FAILURE
     Dosage: 8 MG, QD
     Dates: start: 20040101
  3. ROSUVASTATIN [Concomitant]
     Indication: HYPERLIPIDAEMIA
     Dosage: 20 MG, QD
     Dates: start: 20060101
  4. BISOPROLOL FUMARATE [Concomitant]
     Indication: MYOCARDIAL INFARCTION
     Dosage: 5 MG, QD
     Dates: start: 20060101
  5. ASPIRIN [Concomitant]
     Indication: MYOCARDIAL INFARCTION
     Dosage: 160 MG, QD
     Dates: start: 19910101
  6. FUROSIDE [Concomitant]
     Indication: CARDIAC FAILURE
     Dosage: 40 MG, BID
     Dates: start: 20060101
  7. ILARIS [Suspect]
     Dosage: 300 MG, UNK
     Route: 058
     Dates: start: 20120515, end: 20120515

REACTIONS (2)
  - CARDIAC ARREST [None]
  - SEPSIS [None]
